FAERS Safety Report 24697199 (Version 1)
Quarter: 2024Q4

REPORT INFORMATION
  Report Type: Spontaneous
  Country: US (occurrence: US)
  Receive Date: 20241204
  Receipt Date: 20241204
  Transmission Date: 20250115
  Serious: No
  Sender: SAMSUNG BIOEPIS
  Company Number: US-SAMSUNG BIOEPIS-SB-2024-08970

PATIENT
  Sex: Female

DRUGS (1)
  1. ONTRUZANT [Suspect]
     Active Substance: TRASTUZUMAB-DTTB
     Indication: Nausea
     Route: 042
     Dates: start: 20240318

REACTIONS (3)
  - Throat irritation [Recovered/Resolved]
  - Hypoaesthesia oral [Recovered/Resolved]
  - Off label use [Unknown]

NARRATIVE: CASE EVENT DATE: 20240318
